FAERS Safety Report 6123483-8 (Version None)
Quarter: 2009Q1

REPORT INFORMATION
  Report Type: 
  Country: None (occurrence: None)
  Receive Date: 20090318
  Receipt Date: 20090311
  Transmission Date: 20090719
  Serious: No
  Sender: FDA-Public Use
  Company Number: US-B.I. PHARMACEUTICALS,INC./RIDGEFIELD-2008-BP-04679BP

PATIENT
  Sex: Female

DRUGS (6)
  1. SPIRIVA [Suspect]
     Indication: CHRONIC OBSTRUCTIVE PULMONARY DISEASE
     Dosage: 18MCG
     Route: 055
     Dates: start: 20050101
  2. SPIRIVA [Suspect]
     Indication: EMPHYSEMA
  3. FLOVENT [Concomitant]
     Indication: EMPHYSEMA
  4. ATROVENT [Concomitant]
     Indication: EMPHYSEMA
  5. SYNTHROID [Concomitant]
     Indication: HYPOTHYROIDISM
  6. WELLBUTRIN [Concomitant]
     Indication: DEPRESSION

REACTIONS (8)
  - BREAST DISCOLOURATION [None]
  - BREAST PAIN [None]
  - DRY MOUTH [None]
  - GINGIVAL PAIN [None]
  - GLOSSODYNIA [None]
  - ORAL DISCOMFORT [None]
  - SKIN DISCOLOURATION [None]
  - SWOLLEN TONGUE [None]
